FAERS Safety Report 10231971 (Version 3)
Quarter: 2014Q3

REPORT INFORMATION
  Report Type: Report from Study
  Country: GB (occurrence: GB)
  Receive Date: 20140612
  Receipt Date: 20140812
  Transmission Date: 20150326
  Serious: Yes (Hospitalization)
  Sender: FDA-Public Use
  Company Number: GB-ROCHE-1414264

PATIENT
  Sex: Male
  Weight: 71.1 kg

DRUGS (6)
  1. CREON [Concomitant]
     Active Substance: PANCRELIPASE AMYLASE\PANCRELIPASE LIPASE\PANCRELIPASE PROTEASE
     Dosage: 40,000 UNITS DOSE IS ADMINISTERED AS DESIRED.
     Route: 048
     Dates: start: 201402
  2. CAPECITABINE [Suspect]
     Active Substance: CAPECITABINE
     Dosage: CURRENT TREATMENT CYCLE WAS 4 AND DATE OF LAST DOSE PRIOR TO SERIOUS ADVERSE EVENTS WAS 28/JUL/2014
     Route: 065
  3. OMEPRAZOLE. [Concomitant]
     Active Substance: OMEPRAZOLE
     Route: 048
     Dates: start: 201402
  4. CIPROFLOXACIN. [Concomitant]
     Active Substance: CIPROFLOXACIN
     Indication: CHOLANGITIS
     Route: 065
     Dates: start: 20140617
  5. CAPECITABINE [Suspect]
     Active Substance: CAPECITABINE
     Indication: HEPATIC CANCER
     Dosage: CURRENT TREATMENT CYCLE WAS 3 AND DATE OF LAST DOSE PRIOR TO SERIOUS ADVERSE EVENTS WAS 26/MAY/2014
     Route: 065
  6. AUGMENTIN [Concomitant]
     Active Substance: AMOXICILLIN\CLAVULANATE POTASSIUM
     Indication: CHOLANGITIS
     Route: 065
     Dates: start: 20140617

REACTIONS (5)
  - Chills [Not Recovered/Not Resolved]
  - Chromaturia [Unknown]
  - Fatigue [Unknown]
  - Decreased appetite [Not Recovered/Not Resolved]
  - Abdominal pain [Not Recovered/Not Resolved]
